FAERS Safety Report 10359592 (Version 2)
Quarter: 2014Q4

REPORT INFORMATION
  Report Type: Spontaneous
  Country: GR (occurrence: GR)
  Receive Date: 20140804
  Receipt Date: 20141002
  Transmission Date: 20150528
  Serious: Yes (Other)
  Sender: FDA-Public Use
  Company Number: GR-JNJFOC-20140715400

PATIENT
  Age: 34 Year
  Sex: Male

DRUGS (6)
  1. CHLORPROMAZINE [Interacting]
     Active Substance: CHLORPROMAZINE
     Indication: PSYCHOTIC DISORDER
     Route: 030
  2. HALOPERIDOL. [Suspect]
     Active Substance: HALOPERIDOL
     Indication: PSYCHOMOTOR HYPERACTIVITY
     Route: 030
  3. CHLORPROMAZINE [Interacting]
     Active Substance: CHLORPROMAZINE
     Indication: PSYCHOMOTOR HYPERACTIVITY
     Route: 030
  4. HALOPERIDOL. [Suspect]
     Active Substance: HALOPERIDOL
     Indication: PSYCHOTIC DISORDER
     Route: 030
  5. BIPERIDEN [Suspect]
     Active Substance: BIPERIDEN
     Indication: EXTRAPYRAMIDAL DISORDER
     Route: 030
  6. SERTRALINE [Interacting]
     Active Substance: SERTRALINE HYDROCHLORIDE
     Indication: PRODUCT USED FOR UNKNOWN INDICATION

REACTIONS (3)
  - Drug interaction [Recovered/Resolved]
  - Delirium [Recovered/Resolved]
  - Aspartate aminotransferase increased [Recovered/Resolved]
